FAERS Safety Report 7017417-1 (Version None)
Quarter: 2010Q3

REPORT INFORMATION
  Report Type: 
  Country: None (occurrence: None)
  Receive Date: 20100909
  Receipt Date: 20100707
  Transmission Date: 20110219
  Serious: No
  Sender: FDA-Public Use
  Company Number: 2010SP038452

PATIENT
  Age: 26 Year
  Sex: Female

DRUGS (2)
  1. SAPHRIS [Suspect]
     Indication: MAJOR DEPRESSION
     Dosage: SL
     Route: 060
  2. HALDOL [Concomitant]

REACTIONS (1)
  - EYE MOVEMENT DISORDER [None]
